FAERS Safety Report 9023613 (Version 1)
Quarter: 2013Q1

REPORT INFORMATION
  Report Type: Spontaneous
  Country: US (occurrence: US)
  Receive Date: 20130121
  Receipt Date: 20130121
  Transmission Date: 20140127
  Serious: No
  Sender: FDA-Public Use
  Company Number: US-MYLANLABS-2012S1002069

PATIENT
  Age: 60 Year
  Sex: Female

DRUGS (2)
  1. CETIRIZINE HYDROCHLORIDE [Suspect]
     Indication: URTICARIA
     Route: 048
     Dates: start: 20120124, end: 20120124
  2. CETIRIZINE HYDROCHLORIDE [Suspect]
     Indication: PRURITUS
     Route: 048
     Dates: start: 20120124, end: 20120124

REACTIONS (3)
  - Gait disturbance [Not Recovered/Not Resolved]
  - Eye irritation [Not Recovered/Not Resolved]
  - Somnolence [Not Recovered/Not Resolved]
